FAERS Safety Report 13331320 (Version 4)
Quarter: 2018Q1

REPORT INFORMATION
  Report Type: Spontaneous
  Country: US (occurrence: US)
  Receive Date: 20170313
  Receipt Date: 20180111
  Transmission Date: 20180508
  Serious: No
  Sender: FDA-Public Use
  Company Number: PHEH2017US007367

PATIENT
  Sex: Female
  Weight: 58.96 kg

DRUGS (5)
  1. ZOFRAN ODT [Suspect]
     Active Substance: ONDANSETRON HYDROCHLORIDE
     Indication: PRODUCT USED FOR UNKNOWN INDICATION
     Route: 048
  2. ONDANSETRON [Suspect]
     Active Substance: ONDANSETRON
     Indication: VOMITING IN PREGNANCY
     Dosage: 8 MG, TID
     Route: 065
     Dates: start: 20070920, end: 20070930
  3. ONDANSETRON [Suspect]
     Active Substance: ONDANSETRON
     Dosage: 08 MG, TID
     Route: 065
     Dates: start: 20071007, end: 20071017
  4. ZOFRAN [Suspect]
     Active Substance: ONDANSETRON HYDROCHLORIDE
     Indication: PRODUCT USED FOR UNKNOWN INDICATION
     Route: 048
  5. ONDANSETRON [Suspect]
     Active Substance: ONDANSETRON
     Dosage: 08 MG, TID
     Route: 065
     Dates: start: 20071027, end: 20071106

REACTIONS (3)
  - Maternal exposure during pregnancy [Unknown]
  - Emotional distress [Unknown]
  - Product use issue [Unknown]
